FAERS Safety Report 7179508-4 (Version None)
Quarter: 2010Q4

REPORT INFORMATION
  Report Type: 
  Country: None (occurrence: None)
  Receive Date: 20101209
  Receipt Date: 20101129
  Transmission Date: 20110411
  Serious: Yes (Hospitalization)
  Sender: FDA-Public Use
  Company Number: 021959

PATIENT
  Age: 45 Year
  Sex: Female
  Weight: 43.2 kg

DRUGS (3)
  1. KEPPRA [Suspect]
     Dosage: (2000 MG INTRAVENOUS (NOT OTHERWISE SPECIFIED)), (500 MG BID INTRAVENOUS (NOT OTHERWISE SPECIFIED)
     Route: 042
     Dates: start: 20101108, end: 20101112
  2. COMBIVENT [Concomitant]
  3. PARACETAMOL [Concomitant]

REACTIONS (3)
  - ACTIVATED PARTIAL THROMBOPLASTIN TIME PROLONGED [None]
  - COAGULOPATHY [None]
  - PROTHROMBIN LEVEL INCREASED [None]
